FAERS Safety Report 8187592-4 (Version None)
Quarter: 2012Q1

REPORT INFORMATION
  Report Type: 
  Country: None (occurrence: None)
  Receive Date: 20120306
  Receipt Date: 20120222
  Transmission Date: 20120608
  Serious: Yes (Hospitalization)
  Sender: FDA-Public Use
  Company Number: US-ELI_LILLY_AND_COMPANY-US201109007883

PATIENT
  Sex: Male

DRUGS (27)
  1. BACLOFEN [Concomitant]
  2. GABAPENTIN [Concomitant]
  3. FISH OIL [Concomitant]
  4. FOLIC ACID [Concomitant]
  5. CLONAZEPAM [Concomitant]
  6. VALACICLOVIR [Concomitant]
  7. LYRICA [Concomitant]
  8. LITHIUM CARBONATE [Concomitant]
  9. KALETRA [Concomitant]
  10. TRUVADA [Concomitant]
  11. DIVALPROEX SODIUM [Concomitant]
  12. ROZEREM [Concomitant]
  13. ERYTHROMYCIN [Concomitant]
  14. CALCIUM [Concomitant]
  15. FORTEO [Suspect]
     Indication: OSTEOPOROSIS
     Dosage: 20 UG, QD
     Route: 065
     Dates: start: 20110829
  16. BUPROPION HCL [Concomitant]
  17. TRAZODONE HCL [Concomitant]
  18. KETAMINE HCL [Concomitant]
  19. VOLTAREN [Concomitant]
  20. MULTI-VITAMIN [Concomitant]
  21. ZYPREXA [Suspect]
     Dosage: 15 MG, QD
     Dates: start: 20101025
  22. ZYPREXA [Suspect]
     Indication: BIPOLAR DISORDER
     Dosage: 10 MG, QD
     Dates: start: 20100805, end: 20101024
  23. HYDROXYZINE PAMOATE [Concomitant]
  24. CYCLOBENZAPRINE [Concomitant]
  25. KETOPROFEN [Concomitant]
  26. CELEBREX [Concomitant]
  27. TRAMADOL HCL [Concomitant]

REACTIONS (3)
  - MEMORY IMPAIRMENT [None]
  - PNEUMONIA [None]
  - NASOPHARYNGITIS [None]
